FAERS Safety Report 5858908-6 (Version None)
Quarter: 2008Q3

REPORT INFORMATION
  Report Type: 
  Country: None (occurrence: None)
  Receive Date: 20080825
  Receipt Date: 20080811
  Transmission Date: 20090109
  Serious: Yes (Hospitalization, Other)
  Sender: FDA-Public Use
  Company Number: FABR-1000372

PATIENT
  Age: 57 Year
  Sex: Male
  Weight: 68.6 kg

DRUGS (3)
  1. FABRAZYME [Suspect]
     Indication: FABRY'S DISEASE
     Dosage: 70 MG, Q2W, INTRAVENOUS
     Route: 042
     Dates: start: 20031030
  2. ACETAMINOPHEN [Concomitant]
  3. IMMUNOSUPPRESSIVE AGENTS [Concomitant]

REACTIONS (4)
  - CARDIAC DISORDER [None]
  - FALL [None]
  - RENAL IMPAIRMENT [None]
  - RIB FRACTURE [None]
